FAERS Safety Report 10416818 (Version 1)
Quarter: 2014Q3

REPORT INFORMATION
  Report Type: Spontaneous
  Country: JP (occurrence: JP)
  Receive Date: 20140828
  Receipt Date: 20140828
  Transmission Date: 20150326
  Serious: Yes (Other)
  Sender: FDA-Public Use
  Company Number: JP-BRISTOL-MYERS SQUIBB COMPANY-21332820

PATIENT
  Age: 76 Year
  Sex: Male

DRUGS (1)
  1. ERBITUX [Suspect]
     Active Substance: CETUXIMAB
     Indication: SQUAMOUS CELL CARCINOMA OF HEAD AND NECK
     Dosage: 380.75 MG/BODY INTRAVENOUNLY ONCE WEEKLY.?TOTALLY 8 INFUSIONS.
     Route: 041
     Dates: start: 20140325, end: 20140513

REACTIONS (8)
  - Stomatitis [Recovered/Resolved]
  - Pharyngeal inflammation [Recovered/Resolved]
  - Pneumonia aspiration [Recovered/Resolved]
  - Anaemia [Unknown]
  - Radiation skin injury [Recovered/Resolved]
  - Infusion related reaction [Recovered/Resolved]
  - Dry mouth [Not Recovered/Not Resolved]
  - Blood alkaline phosphatase increased [Recovered/Resolved]

NARRATIVE: CASE EVENT DATE: 20140414
